FAERS Safety Report 21706022 (Version 1)
Quarter: 2022Q4

REPORT INFORMATION
  Report Type: Spontaneous
  Country: US (occurrence: US)
  Receive Date: 20221209
  Receipt Date: 20221209
  Transmission Date: 20230113
  Serious: Yes (Hospitalization)
  Sender: FDA-Public Use
  Company Number: US-MYLANLABS-2022M1136454

PATIENT
  Age: 31 Year
  Sex: Female

DRUGS (1)
  1. ACETAMINOPHEN [Suspect]
     Active Substance: ACETAMINOPHEN
     Indication: Pain
     Dosage: 650 MILLIGRAM, Q6H; EVERY 6 HOURS AS NEEDED
     Route: 048

REACTIONS (4)
  - Condition aggravated [Recovering/Resolving]
  - Glutathione decreased [Recovering/Resolving]
  - Pyroglutamate increased [Recovering/Resolving]
  - Metabolic acidosis [Recovering/Resolving]
